FAERS Safety Report 5835167-1 (Version None)
Quarter: 2008Q3

REPORT INFORMATION
  Report Type: 
  Country: None (occurrence: None)
  Receive Date: 20080725
  Receipt Date: 20080623
  Transmission Date: 20090109
  Serious: Yes (Hospitalization)
  Sender: FDA-Public Use
  Company Number: OPER20080130

PATIENT
  Age: 42 Year
  Sex: Female

DRUGS (2)
  1. OPANA ER [Suspect]
     Dates: start: 20080610
  2. OPANA [Suspect]
     Dates: start: 20080310

REACTIONS (1)
  - RASH [None]
